FAERS Safety Report 15160415 (Version 1)
Quarter: 2018Q3

REPORT INFORMATION
  Report Type: Spontaneous
  Country: US (occurrence: US)
  Receive Date: 20180621
  Receipt Date: 20180621
  Transmission Date: 20181010
  Serious: No
  Sender: FDA-Public Use
  Company Number: None

PATIENT
  Age: 25 Year
  Sex: Female

DRUGS (1)
  1. STELARA [Suspect]
     Active Substance: USTEKINUMAB
     Indication: CROHN^S DISEASE
     Dosage: 90MG EVERY 8 WEEKS SUBCUTANEOUSLY?          ?
     Route: 058
     Dates: start: 20171201

REACTIONS (2)
  - Weight decreased [None]
  - Crohn^s disease [None]

NARRATIVE: CASE EVENT DATE: 20180619
